APPROVED DRUG PRODUCT: MORPHINE SULFATE
Active Ingredient: MORPHINE SULFATE
Strength: 80MG
Dosage Form/Route: CAPSULE, EXTENDED RELEASE;ORAL
Application: A200411 | Product #005
Applicant: IMPAX LABORATORIES INC
Approved: Apr 12, 2016 | RLD: No | RS: No | Type: DISCN